FAERS Safety Report 11574413 (Version 1)
Quarter: 2015Q3

REPORT INFORMATION
  Report Type: Spontaneous
  Country: US (occurrence: None)
  Receive Date: 20150929
  Receipt Date: 20150929
  Transmission Date: 20151125
  Serious: Yes (Hospitalization)
  Sender: FDA-Public Use
  Company Number: None

PATIENT
  Sex: Male
  Weight: 131.09 kg

DRUGS (8)
  1. TESTOSTERONE INJ [Suspect]
     Active Substance: TESTOSTERONE
     Indication: SEXUAL DYSFUNCTION
     Dates: start: 20011114, end: 20060111
  2. LISINIPRIL 5MG [Concomitant]
     Active Substance: LISINOPRIL
  3. NPH INSULIN [Concomitant]
     Active Substance: INSULIN BEEF
  4. POSITIVE AIRWAY PRESSURE DEVICE [Concomitant]
  5. INSULIN ASPART [Concomitant]
     Active Substance: INSULIN ASPART
  6. CARVEDILOL. [Concomitant]
     Active Substance: CARVEDILOL
  7. PANTOPRAZOLE [Concomitant]
     Active Substance: PANTOPRAZOLE SODIUM
  8. HYDROCHLOROTHIAZIDE. [Concomitant]
     Active Substance: HYDROCHLOROTHIAZIDE

REACTIONS (1)
  - Myocardial infarction [None]

NARRATIVE: CASE EVENT DATE: 20140307
